FAERS Safety Report 6419014-5 (Version None)
Quarter: 2009Q4

REPORT INFORMATION
  Report Type: 
  Country: None (occurrence: None)
  Receive Date: 20091029
  Receipt Date: 20091020
  Transmission Date: 20100525
  Serious: Yes (Hospitalization)
  Sender: FDA-Public Use
  Company Number: CH-ASTRAZENECA-2009SE22062

PATIENT
  Age: 90 Year
  Sex: Male

DRUGS (6)
  1. NEXIUM [Suspect]
     Route: 048
  2. MARCUMAR [Interacting]
     Indication: ATRIAL FIBRILLATION
     Route: 048
     Dates: end: 20081227
  3. MARCUMAR [Interacting]
     Indication: ATRIAL FLUTTER
     Route: 048
     Dates: end: 20081227
  4. SIMVASTIN [Interacting]
     Route: 048
  5. BILOL [Concomitant]
     Indication: ESSENTIAL HYPERTENSION
     Route: 048
  6. ACETAMINOPHEN [Concomitant]
     Indication: ARTHRALGIA
     Route: 048

REACTIONS (4)
  - DRUG INTERACTION [None]
  - GASTROINTESTINAL HAEMORRHAGE [None]
  - HAEMORRHAGIC ANAEMIA [None]
  - SHOCK HAEMORRHAGIC [None]
